FAERS Safety Report 8579109-7 (Version None)
Quarter: 2012Q3

REPORT INFORMATION
  Report Type: 
  Country: None (occurrence: None)
  Receive Date: 20120808
  Receipt Date: 20120803
  Transmission Date: 20120928
  Serious: Yes (Other)
  Sender: FDA-Public Use
  Company Number: US-PFIZER INC-2012189449

PATIENT
  Age: 77 Year
  Sex: Male
  Weight: 80.726 kg

DRUGS (5)
  1. CRESTOR [Concomitant]
     Dosage: 10 MG, 1X/DAY
  2. NEURONTIN [Suspect]
     Indication: MUSCLE SPASMS
     Dosage: 300 MG, 1X/DAY
     Route: 048
     Dates: start: 20120802, end: 20120802
  3. NEURONTIN [Suspect]
  4. AMILORIDE [Concomitant]
     Dosage: 5 MG, 1X/DAY
  5. NIFEDIPINE [Concomitant]
     Dosage: 50 MG, 1X/DAY

REACTIONS (4)
  - SWOLLEN TONGUE [None]
  - IMPAIRED DRIVING ABILITY [None]
  - DIZZINESS [None]
  - MUSCLE SPASMS [None]
